FAERS Safety Report 4503522-8 (Version None)
Quarter: 2004Q4

REPORT INFORMATION
  Report Type: 
  Country: None (occurrence: None)
  Receive Date: 20041115
  Receipt Date: 20041104
  Transmission Date: 20050328
  Serious: Yes (Death, Hospitalization)
  Sender: FDA-Public Use
  Company Number: STA-AE-04-MTX-453

PATIENT
  Age: 76 Year
  Sex: Female

DRUGS (9)
  1. RHEUMATREX [Suspect]
     Indication: RHEUMATOID ARTHRITIS
     Dosage: 4 MG 1X PER 1 WK ORAL
     Route: 048
     Dates: start: 20040526, end: 20040720
  2. RHEUMATREX [Suspect]
     Indication: RHEUMATOID ARTHRITIS
     Dosage: 6 MG 1X PER 1 WK, ORAL
     Route: 048
     Dates: start: 20040720, end: 20040910
  3. ALENDRONATE SODIUM [Suspect]
     Indication: OSTEOPOROSIS
     Dosage: 5 MG 1X PER 1 WK, IM
     Route: 030
     Dates: start: 20030820, end: 20040914
  4. MOBIC [Suspect]
     Indication: RHEUMATOID ARTHRITIS
     Dosage: 10 MG 1X PER 1 DAY, ORAL
     Route: 048
     Dates: start: 20040727, end: 20040914
  5. PREDNISOLONE [Suspect]
     Indication: RHEUMATOID ARTHRITIS
     Dosage: 5 MG 1X PER 1 DAY, ORAL
     Route: 048
     Dates: start: 20030902, end: 20040914
  6. SHIOSOL (SODIUM AUROTHIOMALATE) [Suspect]
     Indication: RHEUMATOID ARTHRITIS
     Dosage: SEE IMAGE
     Route: 030
     Dates: start: 20010412, end: 20040907
  7. SHIOSOL (SODIUM AUROTHIOMALATE) [Suspect]
     Indication: RHEUMATOID ARTHRITIS
     Dosage: SEE IMAGE
     Route: 030
     Dates: end: 20040914
  8. TANKARU (CALCIUM CARBONATE) [Suspect]
     Indication: GASTRITIS
     Dosage: 75 MG 1X PER 1 DAY, ORAL
     Route: 048
     Dates: start: 20040727, end: 20040914
  9. ZANTAC [Suspect]
     Indication: GASTRITIS
     Dosage: 75 MG 1X PER 1 DAY, ORAL
     Route: 048
     Dates: start: 20030902, end: 20040727

REACTIONS (5)
  - GENERAL PHYSICAL HEALTH DETERIORATION [None]
  - HYPOXIA [None]
  - INTERSTITIAL LUNG DISEASE [None]
  - PYREXIA [None]
  - RESPIRATORY FAILURE [None]
